FAERS Safety Report 7851321-1 (Version None)
Quarter: 2011Q4

REPORT INFORMATION
  Report Type: 
  Country: None (occurrence: None)
  Receive Date: 20111026
  Receipt Date: 20111018
  Transmission Date: 20120403
  Serious: Yes (Death, Hospitalization, Other)
  Sender: FDA-Public Use
  Company Number: US-BAYER-200940619NA

PATIENT
  Age: 74 Year
  Sex: Male
  Weight: 83.447 kg

DRUGS (20)
  1. TRASYLOL [Suspect]
     Indication: AORTIC VALVE REPLACEMENT
     Dosage: 2000000 U
     Route: 042
     Dates: start: 20070509, end: 20070509
  2. LEXAPRO [Concomitant]
     Dosage: UNK
     Route: 048
     Dates: start: 19981101
  3. ZETIA [Concomitant]
     Dosage: UNK
     Route: 048
     Dates: start: 19981101
  4. HEPARIN [Concomitant]
     Dosage: 5000 U
     Route: 048
     Dates: start: 20070509, end: 20070509
  5. PLATELETS [Concomitant]
     Dosage: 1 U
     Route: 042
     Dates: start: 20070519
  6. TRASYLOL [Suspect]
     Indication: INTRA-AORTIC BALLOON PLACEMENT
     Dosage: 50 ML/HOUR INFUSION
     Route: 042
     Dates: start: 20070509, end: 20070509
  7. COZAAR [Concomitant]
     Dosage: UNK
     Route: 048
     Dates: start: 19981101
  8. TOPROL-XL [Concomitant]
     Dosage: UNK
     Route: 048
     Dates: start: 19981101
  9. ANDROGEL [Concomitant]
     Dosage: UNK
     Route: 048
     Dates: start: 19981101
  10. TRASYLOL [Suspect]
     Indication: MITRAL VALVE REPLACEMENT
     Dosage: 200 ML
     Route: 042
     Dates: start: 20070509, end: 20070509
  11. FRESH FROZEN PLASMA [Concomitant]
     Dosage: 6 U
     Route: 042
     Dates: start: 20070519
  12. MILRINONE [Concomitant]
     Dosage: UNK
     Route: 042
     Dates: start: 20070509
  13. PLAVIX [Concomitant]
     Dosage: UNK
     Route: 048
     Dates: start: 19981101
  14. RED BLOOD CELLS [Concomitant]
     Dosage: 2 U
     Route: 042
     Dates: start: 20070509
  15. RED BLOOD CELLS [Concomitant]
     Dosage: 4 U
     Route: 042
     Dates: start: 20070519
  16. LOVASTATIN [Concomitant]
     Dosage: UNK
     Route: 048
     Dates: start: 19981101
  17. ACETYLSALICYLIC ACID SRT [Concomitant]
     Dosage: UNK
     Route: 048
     Dates: start: 19981101
  18. CELEBREX [Concomitant]
     Dosage: UNK
     Route: 048
     Dates: start: 19981101
  19. DOPAMINE HCL [Concomitant]
     Dosage: 400MG
     Route: 042
     Dates: start: 20070509
  20. ZINACEF [Concomitant]

REACTIONS (13)
  - DEATH [None]
  - STRESS [None]
  - UNEVALUABLE EVENT [None]
  - ANHEDONIA [None]
  - RENAL IMPAIRMENT [None]
  - PAIN [None]
  - ANXIETY [None]
  - INJURY [None]
  - FEAR [None]
  - MULTI-ORGAN FAILURE [None]
  - RENAL INJURY [None]
  - RENAL FAILURE [None]
  - EMOTIONAL DISTRESS [None]
